FAERS Safety Report 8058291-4 (Version None)
Quarter: 2012Q1

REPORT INFORMATION
  Report Type: 
  Country: None (occurrence: None)
  Receive Date: 20120120
  Receipt Date: 20120113
  Transmission Date: 20120608
  Serious: Yes (Hospitalization)
  Sender: FDA-Public Use
  Company Number: DE-UCBSA-035817

PATIENT
  Age: 52 Year
  Sex: Female

DRUGS (1)
  1. LACOSAMIDE [Suspect]
     Indication: PARTIAL SEIZURES
     Route: 048
     Dates: start: 20100211

REACTIONS (2)
  - CONVULSION [None]
  - HEMIPARESIS [None]
